FAERS Safety Report 4353002-8 (Version None)
Quarter: 2004Q2

REPORT INFORMATION
  Report Type: 
  Country: None (occurrence: None)
  Receive Date: 20040430
  Receipt Date: 20040329
  Transmission Date: 20050107
  Serious: No
  Sender: FDA-Public Use
  Company Number: 205568

PATIENT
  Age: 41 Year
  Sex: Male

DRUGS (1)
  1. XOLAIR [Suspect]
     Dates: start: 20040312

REACTIONS (2)
  - CHEST PAIN [None]
  - HYPERTENSION [None]
